FAERS Safety Report 10283804 (Version 1)
Quarter: 2014Q3

REPORT INFORMATION
  Report Type: Spontaneous
  Country: LK (occurrence: None)
  Receive Date: 20140703
  Receipt Date: 20140703
  Transmission Date: 20150326
  Serious: Yes (Death)
  Sender: FDA-Public Use
  Company Number: FK201402552

PATIENT
  Age: 25 Year
  Sex: Male

DRUGS (1)
  1. MORPHINE (MANUFACTURER UNKNOWN) (MORPHINE) (MORPHINE) [Suspect]
     Active Substance: MORPHINE
     Indication: PRODUCT USED FOR UNKNOWN INDICATION

REACTIONS (6)
  - Asphyxia [None]
  - Accidental death [None]
  - Inflammation [None]
  - Toxicity to various agents [None]
  - Depressed level of consciousness [None]
  - Conjunctival haemorrhage [None]
